FAERS Safety Report 9607232 (Version 1)
Quarter: 2013Q4

REPORT INFORMATION
  Report Type: Spontaneous
  Country: US (occurrence: US)
  Receive Date: 20131009
  Receipt Date: 20131009
  Transmission Date: 20140711
  Serious: No
  Sender: FDA-Public Use
  Company Number: US-B.I. PHARMACEUTICALS,INC./RIDGEFIELD-2013-BI-31070BP

PATIENT
  Sex: Female

DRUGS (1)
  1. GILOTRIF [Suspect]
     Indication: NEOPLASM MALIGNANT
     Dosage: 20 MG
     Route: 048

REACTIONS (2)
  - Local swelling [Not Recovered/Not Resolved]
  - Abdominal distension [Not Recovered/Not Resolved]
